FAERS Safety Report 15328432 (Version 5)
Quarter: 2022Q1

REPORT INFORMATION
  Report Type: Other
  Country: PT (occurrence: None)
  Receive Date: 20180829
  Receipt Date: 20220204
  Transmission Date: 20220423
  Serious: Yes (Hospitalization)
  Sender: FDA-Public Use
  Company Number: PT-ROCHE-2176116

PATIENT
  Age: 65 Year
  Sex: Female
  Weight: 87 kg

DRUGS (27)
  1. TRASTUZUMAB [Suspect]
     Active Substance: TRASTUZUMAB
     Indication: HER2 positive breast cancer
     Route: 042
     Dates: start: 20171024, end: 20180823
  2. PERTUZUMAB [Suspect]
     Active Substance: PERTUZUMAB
     Indication: HER2 positive breast cancer
     Dosage: LAST DOSE OF PERTUZUMAB PRIOR TO ONSET OF EVENT ON 27/MAR/2018.
     Route: 042
     Dates: start: 20171024
  3. DOCETAXEL [Suspect]
     Active Substance: DOCETAXEL
     Indication: HER2 positive breast cancer
     Dosage: LAST DOSE OF PERTUZUMAB PRIOR TO ONSET OF EVENT ON 30/JAN/2018.
     Route: 042
     Dates: start: 20171024
  4. LETROZOLE [Suspect]
     Active Substance: LETROZOLE
     Indication: HER2 positive breast cancer
     Route: 048
     Dates: start: 20180417, end: 20180906
  5. DENOSUMAB [Suspect]
     Active Substance: DENOSUMAB
     Indication: HER2 positive breast cancer
     Route: 058
     Dates: start: 20180509
  6. FORMOTEROL [Concomitant]
     Active Substance: FORMOTEROL
     Dates: end: 20200507
  7. LOPERAMIDE [Concomitant]
     Active Substance: LOPERAMIDE
     Dosage: ONGOING = NOT CHECKED
     Dates: start: 20180104, end: 20180615
  8. BUDESONIDE [Concomitant]
     Active Substance: BUDESONIDE
     Dates: end: 20200507
  9. BILASTINE [Concomitant]
     Active Substance: BILASTINE
     Dates: end: 20200507
  10. METFORMIN [Concomitant]
     Active Substance: METFORMIN HYDROCHLORIDE
     Dates: end: 20200507
  11. LISINOPRIL [Concomitant]
     Active Substance: LISINOPRIL
     Dates: end: 20200507
  12. ROSUVASTATIN [Concomitant]
     Active Substance: ROSUVASTATIN
     Dates: end: 20200507
  13. ZOLPIDEM [Concomitant]
     Active Substance: ZOLPIDEM TARTRATE
     Dates: end: 20200507
  14. ESCITALOPRAM [Concomitant]
     Active Substance: ESCITALOPRAM OXALATE
     Dates: end: 20200507
  15. DIAZEPAM [Concomitant]
     Active Substance: DIAZEPAM
     Dates: end: 20200507
  16. INSULIN PORK\INSULIN PURIFIED PORK [Concomitant]
     Active Substance: INSULIN PORK\INSULIN PURIFIED PORK
     Dates: end: 20200507
  17. ENOXAPARIN [Concomitant]
     Active Substance: ENOXAPARIN
     Dates: end: 20200507
  18. ACETAMINOPHEN [Concomitant]
     Active Substance: ACETAMINOPHEN
     Dosage: ONGOING = CHECKED
     Dates: start: 20180108, end: 20200507
  19. ACETAMINOPHEN [Concomitant]
     Active Substance: ACETAMINOPHEN
     Dosage: ONGOING = NOT CHECKED
  20. METOCLOPRAMIDE [Concomitant]
     Active Substance: METOCLOPRAMIDE
     Dosage: ONGOING = NOT CHECKED
     Dates: end: 20200507
  21. ALPRAZOLAM [Concomitant]
     Active Substance: ALPRAZOLAM
     Dosage: ONGOING = NOT CHECKED
     Dates: end: 20200507
  22. OMEPRAZOLE [Concomitant]
     Active Substance: OMEPRAZOLE
     Dates: end: 20200507
  23. THIOCOLCHICOSIDE [Concomitant]
     Active Substance: THIOCOLCHICOSIDE
     Dates: start: 20180108
  24. THIOCOLCHICOSIDE [Concomitant]
     Active Substance: THIOCOLCHICOSIDE
     Dates: start: 20180706, end: 20200507
  25. NAPROXEN [Concomitant]
     Active Substance: NAPROXEN
     Dates: start: 20180706, end: 20200507
  26. MORPHINE [Concomitant]
     Active Substance: MORPHINE
     Dates: end: 20200507
  27. MONTELUKAST [Concomitant]
     Active Substance: MONTELUKAST SODIUM
     Dates: end: 20200507

REACTIONS (1)
  - Pyelonephritis [Recovered/Resolved]

NARRATIVE: CASE EVENT DATE: 20180714
